FAERS Safety Report 17550946 (Version 1)
Quarter: 2020Q1

REPORT INFORMATION
  Report Type: Spontaneous
  Country: US (occurrence: US)
  Receive Date: 20200309
  Receipt Date: 20200309
  Transmission Date: 20200409
  Serious: Yes (Death)
  Sender: FDA-Public Use
  Company Number: None

PATIENT
  Age: 31 Year
  Sex: Female
  Weight: 61.23 kg

DRUGS (2)
  1. DROSPIRENONE-EE 3-0.02MG TAB [Suspect]
     Active Substance: DROSPIRENONE\ETHINYL ESTRADIOL
     Indication: CONTRACEPTION
     Dosage: ?          OTHER STRENGTH:3 MG/0.02MG;QUANTITY:1 TAB;?
     Route: 048
  2. EPIPEN [Concomitant]
     Active Substance: EPINEPHRINE

REACTIONS (1)
  - Subarachnoid haemorrhage [None]

NARRATIVE: CASE EVENT DATE: 20190711
